FAERS Safety Report 14878303 (Version 1)
Quarter: 2018Q2

REPORT INFORMATION
  Report Type: Spontaneous
  Country: DE (occurrence: DE)
  Receive Date: 20180511
  Receipt Date: 20180511
  Transmission Date: 20180711
  Serious: Yes (Hospitalization)
  Sender: FDA-Public Use
  Company Number: DE-MERCK KGAA-2047596

PATIENT
  Age: 42 Year
  Sex: Male

DRUGS (1)
  1. NOVOTHYROX [Suspect]
     Active Substance: LEVOTHYROXINE SODIUM
     Indication: PRODUCT USED FOR UNKNOWN INDICATION
     Route: 065

REACTIONS (8)
  - Hyperthyroidism [Unknown]
  - Vomiting [Unknown]
  - Blood pressure increased [Unknown]
  - Drug prescribing error [Unknown]
  - Dizziness [Unknown]
  - Blood thyroid stimulating hormone decreased [Unknown]
  - Hypertension [Unknown]
  - Cold sweat [Unknown]
